FAERS Safety Report 18215366 (Version 2)
Quarter: 2020Q3

REPORT INFORMATION
  Report Type: Spontaneous
  Country: US (occurrence: US)
  Receive Date: 20200831
  Receipt Date: 20200907
  Transmission Date: 20201103
  Serious: No
  Sender: FDA-Public Use
  Company Number: US-TOLMAR, INC.-20US022531

PATIENT
  Age: 48 Year
  Sex: Female

DRUGS (3)
  1. ELIGARD [Suspect]
     Active Substance: LEUPROLIDE ACETATE
     Indication: HORMONE RECEPTOR POSITIVE BREAST CANCER
     Dosage: 7.5 MG, UNKNOWN FREQUENCY
     Route: 065
     Dates: start: 202001
  2. LUPRON [Concomitant]
     Active Substance: LEUPROLIDE ACETATE
     Indication: BREAST CANCER
     Dosage: UNK
     Route: 065
  3. ELIGARD [Suspect]
     Active Substance: LEUPROLIDE ACETATE
     Dosage: 7.5 MG, UNKNOWN FREQUENCY
     Route: 065
     Dates: start: 20200820

REACTIONS (3)
  - Off label use [Recovered/Resolved]
  - Injection site pain [Unknown]
  - Intentional dose omission [Not Recovered/Not Resolved]

NARRATIVE: CASE EVENT DATE: 202001
